FAERS Safety Report 8773893 (Version 1)
Quarter: 2012Q4

REPORT INFORMATION
  Report Type: 
  Country: US (occurrence: US)
  Receive Date: 20120907
  Receipt Date: 20120907
  Transmission Date: 20130627
  Serious: Yes (Other)
  Sender: FDA-Public Use
  Company Number: US-JNJFOC-20120900344

PATIENT
  Age: 45 Year
  Sex: Female
  Weight: 62.6 kg

DRUGS (4)
  1. SUDAFED 12 HOUR [Suspect]
     Route: 048
  2. SUDAFED 12 HOUR [Suspect]
     Indication: SINUS HEADACHE
     Route: 048
     Dates: start: 20120822, end: 20120822
  3. LEVOTHYROXINE [Concomitant]
     Indication: THYROID DISORDER
     Route: 065
  4. VITAMIN D [Concomitant]
     Indication: PRODUCT USED FOR UNKNOWN INDICATION
     Route: 065

REACTIONS (4)
  - Balance disorder [Recovering/Resolving]
  - Eating disorder [Recovering/Resolving]
  - Nausea [Recovering/Resolving]
  - Drug ineffective [Unknown]
